FAERS Safety Report 8611848-1 (Version None)
Quarter: 2012Q3

REPORT INFORMATION
  Report Type: 
  Country: None (occurrence: None)
  Receive Date: 20120809
  Receipt Date: 20120727
  Transmission Date: 20120928
  Serious: Yes (Hospitalization, Other)
  Sender: FDA-Public Use
  Company Number: 2012MA009606

PATIENT
  Age: 61 Year
  Sex: Female

DRUGS (12)
  1. QUININE SULFATE [Concomitant]
  2. SIMVASTATIN [Concomitant]
  3. ACETYLSALICYLIC ACID SRT [Concomitant]
  4. METFORMIN HCL [Concomitant]
  5. HYPROMELLOSE [Concomitant]
  6. INDAPAMIDE [Suspect]
     Dosage: PO
     Route: 048
     Dates: start: 20120702, end: 20120717
  7. ADALAT CC [Concomitant]
  8. CITALOPRAM [Concomitant]
  9. CARBOMER [Concomitant]
  10. ACETAMINOPHEN [Concomitant]
  11. RAMIPRIL [Concomitant]
  12. VENTOLIN [Concomitant]

REACTIONS (2)
  - DRUG RASH WITH EOSINOPHILIA AND SYSTEMIC SYMPTOMS [None]
  - ANGIOEDEMA [None]
